FAERS Safety Report 22317592 (Version 1)
Quarter: 2023Q2

REPORT INFORMATION
  Report Type: Spontaneous
  Country: CA (occurrence: CA)
  Receive Date: 20230515
  Receipt Date: 20230515
  Transmission Date: 20230721
  Serious: Yes (Hospitalization, Other)
  Sender: FDA-Public Use
  Company Number: CA-AMGEN-CANSP2023081065

PATIENT
  Age: 65 Year

DRUGS (2)
  1. TRASTUZUMAB [Suspect]
     Active Substance: TRASTUZUMAB
     Indication: Product used for unknown indication
     Dosage: UNK
     Route: 065
  2. EPIRUBICIN [Concomitant]
     Active Substance: EPIRUBICIN
     Dosage: HIGH-DOSE

REACTIONS (4)
  - Mitral valve incompetence [Unknown]
  - Cardiac failure chronic [Unknown]
  - Cardiotoxicity [Unknown]
  - Pulmonary oedema [Unknown]
